FAERS Safety Report 7879137-0 (Version None)
Quarter: 2011Q4

REPORT INFORMATION
  Report Type: 
  Country: None (occurrence: None)
  Receive Date: 20111101
  Receipt Date: 20111021
  Transmission Date: 20120403
  Serious: Yes (Other)
  Sender: FDA-Public Use
  Company Number: US-BAYER-2010-004813

PATIENT
  Age: 46 Year
  Sex: Female
  Weight: 108.84 kg

DRUGS (10)
  1. AMITRIPTYLINE HCL [Concomitant]
  2. DROSPIRENONE AND ETHINYL ESTRADIOL [Suspect]
     Indication: PREMENSTRUAL SYNDROME
     Dosage: UNK
     Dates: start: 20080101, end: 20100101
  3. IBUPROFEN [Concomitant]
     Dosage: UNK
     Dates: start: 19990101
  4. HYDROCHLOROTHIAZIDE [Concomitant]
  5. ASCORBIC ACID [Concomitant]
  6. CLONIDINE [Concomitant]
  7. ELAVIL [Concomitant]
  8. YASMIN [Suspect]
     Indication: PREMENSTRUAL SYNDROME
     Dosage: UNK
     Dates: start: 20050101, end: 20070101
  9. NSAID'S [Concomitant]
  10. WELLBUTRIN [Concomitant]

REACTIONS (8)
  - CHOLELITHIASIS [None]
  - BACK PAIN [None]
  - CHOLECYSTITIS [None]
  - ANXIETY [None]
  - GENERAL PHYSICAL HEALTH DETERIORATION [None]
  - PAIN [None]
  - ABDOMINAL PAIN [None]
  - EMOTIONAL DISTRESS [None]
